FAERS Safety Report 5744196-8 (Version None)
Quarter: 2008Q2

REPORT INFORMATION
  Report Type: 
  Country: None (occurrence: None)
  Receive Date: 20080520
  Receipt Date: 20080515
  Transmission Date: 20081010
  Serious: Yes (Life-Threatening, Hospitalization, Other)
  Sender: FDA-Public Use
  Company Number: FI-WYE-G01550608

PATIENT
  Sex: Male

DRUGS (4)
  1. TEMSIROLIMUS [Suspect]
     Indication: METASTATIC RENAL CELL CARCINOMA
     Route: 042
     Dates: start: 20071123
  2. KYTRIL [Concomitant]
     Indication: ANTIEMETIC SUPPORTIVE CARE
     Dosage: 3 MG EVERY 1 TOT
     Route: 042
     Dates: start: 20080506
  3. DEXAMETHASONE TAB [Concomitant]
     Dosage: 10 MG EVERY
     Route: 042
     Dates: start: 20080506
  4. CETIRIZINE HCL [Concomitant]
     Indication: ALLERGY PROPHYLAXIS
     Dosage: 10 MG EVERY 1 TOT
     Route: 048
     Dates: start: 20080506

REACTIONS (1)
  - PNEUMONITIS [None]
